FAERS Safety Report 16545733 (Version 1)
Quarter: 2019Q3

REPORT INFORMATION
  Report Type: Spontaneous
  Country: GB (occurrence: GB)
  Receive Date: 20190709
  Receipt Date: 20190709
  Transmission Date: 20191004
  Serious: Yes (Life-Threatening)
  Sender: FDA-Public Use
  Company Number: GB-TEVA-2019-GB-1074300

PATIENT
  Age: 17 Year
  Sex: Female
  Weight: 61 kg

DRUGS (1)
  1. PROPRANOLOL [Suspect]
     Active Substance: PROPRANOLOL HYDROCHLORIDE
     Indication: ANXIETY
     Dosage: 120MG
     Route: 065
     Dates: start: 20190610, end: 20190610

REACTIONS (7)
  - Off label use [Unknown]
  - Bradycardia [Unknown]
  - Intentional overdose [Unknown]
  - Cardiac arrest [Recovered/Resolved]
  - Hypotension [Unknown]
  - Unresponsive to stimuli [Unknown]
  - Pulse absent [Unknown]

NARRATIVE: CASE EVENT DATE: 20190610
